FAERS Safety Report 10753316 (Version 1)
Quarter: 2015Q1

REPORT INFORMATION
  Report Type: Spontaneous
  Country: FR (occurrence: FR)
  Receive Date: 20150130
  Receipt Date: 20150130
  Transmission Date: 20150721
  Serious: Yes (Hospitalization, Other)
  Sender: FDA-Public Use
  Company Number: FR-ASTRAZENECA-2015SE08584

PATIENT
  Age: 1098 Month
  Sex: Female

DRUGS (13)
  1. INEXIUM [Suspect]
     Active Substance: ESOMEPRAZOLE
     Route: 048
  2. AMOXICILLINE [Concomitant]
     Active Substance: AMOXICILLIN
     Dates: start: 20141023
  3. NORSET [Suspect]
     Active Substance: MIRTAZAPINE
     Route: 048
  4. ROCEPHINE [Concomitant]
     Active Substance: CEFTRIAXONE SODIUM
     Indication: URINARY TRACT INFECTION
     Dates: start: 20141016
  5. LASILIX RETARD [Concomitant]
     Active Substance: FUROSEMIDE
     Dates: start: 20141023
  6. NORMACOL [Concomitant]
     Active Substance: KARAYA GUM
  7. NEOMERCAZOLE [Concomitant]
     Active Substance: CARBIMAZOLE
  8. FUMAFER [Concomitant]
     Active Substance: FERROUS FUMARATE
     Dosage: 1 IN THE MORNING AND 1 IN THE EVENNING
  9. AMLODIPINE [Suspect]
     Active Substance: AMLODIPINE BESYLATE
     Route: 048
  10. FORLAX [Concomitant]
     Active Substance: POLYETHYLENE GLYCOL 4000
  11. TOPALGIC [Suspect]
     Active Substance: TRAMADOL
     Route: 048
  12. PARACETAMOL [Concomitant]
     Active Substance: ACETAMINOPHEN
  13. KARDEGIC [Concomitant]
     Active Substance: ASPIRIN LYSINE

REACTIONS (8)
  - Cardiac failure [Unknown]
  - Faecaloma [Unknown]
  - Mixed dementia [Unknown]
  - Cerebral atrophy [Unknown]
  - Ischaemic cerebral infarction [Unknown]
  - Confusional state [Recovered/Resolved]
  - Decreased appetite [Unknown]
  - Pleurisy [Unknown]

NARRATIVE: CASE EVENT DATE: 201410
